FAERS Safety Report 22302469 (Version 3)
Quarter: 2023Q4

REPORT INFORMATION
  Report Type: Spontaneous
  Country: US (occurrence: US)
  Receive Date: 20230510
  Receipt Date: 20231004
  Transmission Date: 20240110
  Serious: Yes (Other)
  Sender: FDA-Public Use
  Company Number: US-BRISTOL-MYERS SQUIBB COMPANY-2023-062131

PATIENT
  Age: 74 Year
  Sex: Male

DRUGS (1)
  1. LENALIDOMIDE [Suspect]
     Active Substance: LENALIDOMIDE
     Indication: Nephrogenic anaemia
     Dosage: FREQUENCY: TAKE 1 CAPSULE BY MOUTH DAILY FOR 14. TAKE 1 CAPSULE BY MOUTH DAILY FOR 14 DAYS OF A 21 D
     Route: 048
     Dates: start: 20230111

REACTIONS (2)
  - Off label use [Unknown]
  - Product dose omission issue [Unknown]
